FAERS Safety Report 6136970-3 (Version None)
Quarter: 2009Q1

REPORT INFORMATION
  Report Type: 
  Country: None (occurrence: None)
  Receive Date: 20090330
  Receipt Date: 20090320
  Transmission Date: 20090719
  Serious: Yes (Hospitalization)
  Sender: FDA-Public Use
  Company Number: US-ELI_LILLY_AND_COMPANY-US200903005297

PATIENT
  Sex: Female

DRUGS (11)
  1. FORTEO [Suspect]
  2. VALTREX [Concomitant]
  3. LEUCOVORIN CALCIUM [Concomitant]
  4. NYSTATIN [Concomitant]
  5. DORIPENEM [Concomitant]
     Route: 042
  6. ZYVOX [Concomitant]
     Route: 042
  7. PLAQUENIL [Concomitant]
  8. ZETIA [Concomitant]
  9. ZOCOR [Concomitant]
  10. PREDNISONE [Concomitant]
  11. OMEPRAZOLE [Concomitant]

REACTIONS (1)
  - CELLULITIS [None]
